FAERS Safety Report 5036365-X (Version None)
Quarter: 2006Q2

REPORT INFORMATION
  Report Type: 
  Country: None (occurrence: None)
  Receive Date: 20060601
  Receipt Date: 20060424
  Transmission Date: 20061013
  Serious: No
  Sender: FDA-Public Use
  Company Number: US200604003749

PATIENT
  Age: 69 Year
  Sex: Female
  Weight: 84.8226 kg

DRUGS (8)
  1. CYMBALTA [Suspect]
     Indication: FIBROMYALGIA
     Dosage: 60 MG; 30 MG DAILY (1/D)
     Dates: start: 20060201, end: 20060423
  2. CYMBALTA [Suspect]
     Indication: FIBROMYALGIA
     Dosage: 60 MG; 30 MG DAILY (1/D)
     Dates: start: 20060201, end: 20060423
  3. DURAGESIC-100 [Concomitant]
  4. ATIVAN [Concomitant]
  5. LEVBID (HYOSCYAMINE SULFATE) [Concomitant]
  6. DIAZIDE (GLICLAZIDE) [Concomitant]
  7. ATENOLOL [Concomitant]
  8. POTASSIUM (POTASSIUM) [Concomitant]

REACTIONS (2)
  - FEELING HOT [None]
  - HYPERHIDROSIS [None]
